FAERS Safety Report 16806197 (Version 1)
Quarter: 2019Q3

REPORT INFORMATION
  Report Type: Spontaneous
  Country: GB (occurrence: GB)
  Receive Date: 20190913
  Receipt Date: 20190913
  Transmission Date: 20191005
  Serious: Yes (Other)
  Sender: FDA-Public Use
  Company Number: PHHY2019GB210248

PATIENT
  Age: 36 Year
  Sex: Female
  Weight: 84 kg

DRUGS (1)
  1. AMOXICILLIN. [Suspect]
     Active Substance: AMOXICILLIN
     Indication: LOWER RESPIRATORY TRACT INFECTION
     Dosage: 500 MG, UNK
     Route: 048
     Dates: start: 20190819

REACTIONS (4)
  - Fatigue [Recovered/Resolved with Sequelae]
  - Pain [Recovering/Resolving]
  - Headache [Recovered/Resolved with Sequelae]
  - Nausea [Recovering/Resolving]

NARRATIVE: CASE EVENT DATE: 20190820
